FAERS Safety Report 9041131 (Version 1)
Quarter: 2013Q1

REPORT INFORMATION
  Report Type: Spontaneous
  Country: US (occurrence: None)
  Receive Date: 20130124
  Receipt Date: 20130124
  Transmission Date: 20140127
  Serious: Yes (Other)
  Sender: FDA-Public Use
  Company Number: None

PATIENT
  Age: 84 Year
  Sex: Female
  Weight: 52.16 kg

DRUGS (1)
  1. EYLEA MEASURED DOSE INJECTED INTO EYE [Suspect]
     Indication: AGE-RELATED MACULAR DEGENERATION
     Dosage: MONTHLY  EYE
     Route: 047
     Dates: start: 20121105, end: 20121203

REACTIONS (7)
  - Headache [None]
  - Dyspnoea [None]
  - Asthenia [None]
  - Dyspepsia [None]
  - Abdominal pain lower [None]
  - Gastrointestinal pain [None]
  - Viral infection [None]
